FAERS Safety Report 5793271-0 (Version None)
Quarter: 2008Q2

REPORT INFORMATION
  Report Type: 
  Country: None (occurrence: None)
  Receive Date: 20080626
  Receipt Date: 20080626
  Transmission Date: 20081010
  Serious: Yes (Other)
  Sender: FDA-Public Use
  Company Number: None

PATIENT
  Age: 70 Year
  Sex: Female

DRUGS (1)
  1. LEVAQUIN [Suspect]
     Indication: INFECTION
     Dosage: 10 TABLETS ONCE DAILY PO
     Route: 048
     Dates: start: 20080512, end: 20080521

REACTIONS (1)
  - TENDON RUPTURE [None]
